FAERS Safety Report 19428235 (Version 1)
Quarter: 2021Q2

REPORT INFORMATION
  Report Type: Spontaneous
  Country: US (occurrence: US)
  Receive Date: 20210617
  Receipt Date: 20210617
  Transmission Date: 20210717
  Serious: Yes (Disabling, Other)
  Sender: FDA-Public Use
  Company Number: None

PATIENT
  Age: 62 Year
  Sex: Female
  Weight: 81.9 kg

DRUGS (4)
  1. SYNTHROID 0.137 MCG [Concomitant]
  2. PREDNISONE 40MG [Concomitant]
     Active Substance: PREDNISONE
  3. CALCIUM 1200 MG [Concomitant]
  4. IBRANCE [Suspect]
     Active Substance: PALBOCICLIB
     Indication: BREAST CANCER STAGE IV
     Dosage: ?          QUANTITY:1 TABLET(S);?
     Route: 048
     Dates: start: 20200628, end: 20210508

REACTIONS (1)
  - Organising pneumonia [None]

NARRATIVE: CASE EVENT DATE: 20210507
